FAERS Safety Report 6453081-8 (Version None)
Quarter: 2009Q4

REPORT INFORMATION
  Report Type: 
  Country: None (occurrence: None)
  Receive Date: 20091123
  Receipt Date: 20091123
  Transmission Date: 20100525
  Serious: Yes (Other)
  Sender: FDA-Public Use
  Company Number: None

PATIENT
  Sex: Female
  Weight: 51.2565 kg

DRUGS (1)
  1. AMBIEN CR [Suspect]
     Indication: INSOMNIA
     Dosage: 12 MG ? BOTTLE SAYS 5MG NIGHTLY
     Dates: start: 20070101, end: 20090101

REACTIONS (8)
  - FEAR [None]
  - FEELING ABNORMAL [None]
  - PALPITATIONS [None]
  - PANIC ATTACK [None]
  - SCREAMING [None]
  - SENSORY DISTURBANCE [None]
  - TREMOR [None]
  - VIOLENCE-RELATED SYMPTOM [None]
